FAERS Safety Report 14638904 (Version 1)
Quarter: 2018Q1

REPORT INFORMATION
  Report Type: Spontaneous
  Country: US (occurrence: US)
  Receive Date: 20180315
  Receipt Date: 20180315
  Transmission Date: 20180509
  Serious: Yes (Other)
  Sender: FDA-Public Use
  Company Number: US-ACCORD-064204

PATIENT
  Age: 79 Year
  Sex: Female
  Weight: 55.79 kg

DRUGS (1)
  1. PRAVASTATIN. [Suspect]
     Active Substance: PRAVASTATIN
     Indication: BLOOD CHOLESTEROL INCREASED
     Dosage: STRENGTH: 10 MG?QPM?STARTED 4 YEARS AGO WITH 10 MG AND  INCREASE 20 MG DAILY IN 2014
     Route: 048

REACTIONS (7)
  - Migraine [Unknown]
  - Paraesthesia [Unknown]
  - Muscle spasms [Unknown]
  - Urinary retention [Unknown]
  - Withdrawal syndrome [Unknown]
  - Dyspnoea [Unknown]
  - Pain [Unknown]
